FAERS Safety Report 8332478-5 (Version None)
Quarter: 2012Q2

REPORT INFORMATION
  Report Type: 
  Country: None (occurrence: None)
  Receive Date: 20120503
  Receipt Date: 20120423
  Transmission Date: 20120825
  Serious: No
  Sender: FDA-Public Use
  Company Number: US-PFIZER INC-2012101095

PATIENT
  Sex: Female
  Weight: 77.1 kg

DRUGS (3)
  1. AVINZA [Suspect]
     Indication: MUSCULOSKELETAL PAIN
     Dosage: 45 MG, 2X/DAY
     Route: 048
     Dates: start: 20120301
  2. AZOR [Concomitant]
     Indication: HYPERTENSION
     Dosage: 5/20 MG, DAILY
  3. AVINZA [Suspect]
     Dosage: UNK, 2X/DAY

REACTIONS (2)
  - CIRCUMSTANCE OR INFORMATION CAPABLE OF LEADING TO MEDICATION ERROR [None]
  - DRUG EFFECT DECREASED [None]
